FAERS Safety Report 21558473 (Version 1)
Quarter: 2022Q4

REPORT INFORMATION
  Report Type: Spontaneous
  Country: US (occurrence: US)
  Receive Date: 20221107
  Receipt Date: 20221107
  Transmission Date: 20230113
  Serious: No
  Sender: FDA-Public Use
  Company Number: US-JNJFOC-20221106201

PATIENT
  Age: 79 Year
  Sex: Male

DRUGS (4)
  1. ZYTIGA [Suspect]
     Active Substance: ABIRATERONE ACETATE
     Indication: Product used for unknown indication
     Route: 048
  2. ORGOVYX [Suspect]
     Active Substance: RELUGOLIX
     Indication: Prostate cancer
     Route: 048
  3. ORGOVYX [Suspect]
     Active Substance: RELUGOLIX
     Route: 048
  4. ORGOVYX [Suspect]
     Active Substance: RELUGOLIX
     Route: 048

REACTIONS (15)
  - Tremor [Unknown]
  - Balance disorder [Unknown]
  - Eye pain [Unknown]
  - Cardiac disorder [Unknown]
  - Headache [Unknown]
  - Blood glucose increased [Not Recovered/Not Resolved]
  - Fatigue [Unknown]
  - Hot flush [Unknown]
  - Asthenia [Unknown]
  - Abdominal discomfort [Recovered/Resolved]
  - Chest pain [Unknown]
  - Malaise [Unknown]
  - COVID-19 [Unknown]
  - Nausea [Recovering/Resolving]
  - Product dose omission issue [Unknown]
